FAERS Safety Report 11745000 (Version 1)
Quarter: 2015Q4

REPORT INFORMATION
  Report Type: Spontaneous
  Country: JP (occurrence: JP)
  Receive Date: 20151117
  Receipt Date: 20151117
  Transmission Date: 20160304
  Serious: Yes (Hospitalization)
  Sender: FDA-Public Use
  Company Number: JP-ACCORD-035364

PATIENT
  Age: 30 Year
  Sex: Female

DRUGS (3)
  1. TS-1 [Suspect]
     Active Substance: GIMERACIL\OTERACIL\TEGAFUR
     Indication: GASTRIC CANCER STAGE IV
     Dosage: STRENGTH: 100 MG/BODY.??RECEIVED DAILY FROM DAY 1 TO DAY 14 IN A CYCLE.??RECEIVED 2 CYCLES.
  2. CISPLATIN. [Suspect]
     Active Substance: CISPLATIN
     Indication: GASTRIC CANCER STAGE IV
  3. PACLITAXEL/PACLITAXEL LIPOSOME [Suspect]
     Active Substance: PACLITAXEL
     Indication: GASTRIC CANCER STAGE IV
     Dosage: RECEIVED 2 CYCLES.

REACTIONS (4)
  - Condition aggravated [Unknown]
  - Maternal exposure during pregnancy [Unknown]
  - Cardiac tamponade [Unknown]
  - Neuropathy peripheral [Unknown]
